FAERS Safety Report 7583088-9 (Version None)
Quarter: 2011Q2

REPORT INFORMATION
  Report Type: 
  Country: None (occurrence: None)
  Receive Date: 20110630
  Receipt Date: 20110621
  Transmission Date: 20111010
  Serious: Yes (Hospitalization)
  Sender: FDA-Public Use
  Company Number: PT-ELI_LILLY_AND_COMPANY-PT201106006772

PATIENT
  Age: 70 Year
  Sex: Female
  Weight: 79.5 kg

DRUGS (15)
  1. MULTI-VITAMINS [Concomitant]
     Dosage: UNK
     Dates: start: 20110525
  2. VITAMIN B-12 [Concomitant]
     Dosage: UNK
     Dates: start: 20110525
  3. FLUTICASONE PROPIONATE W/SALMETEROL [Concomitant]
     Dosage: UNK
  4. FOLIC ACID [Concomitant]
     Dosage: UNK
     Dates: start: 20110525
  5. DEXAMETHASONE [Concomitant]
     Dosage: 20 MG, UNKNOWN
     Route: 065
  6. MANNITOL [Concomitant]
     Dosage: 100 ML, UNKNOWN
     Route: 065
  7. CISPLATIN [Concomitant]
     Dosage: 141.75 MG, EVERY 21 DAYS
     Route: 065
  8. MONTELUKAST SODIUM [Concomitant]
     Dosage: 10 MG, UNK
     Route: 048
  9. MANNITOL [Concomitant]
     Dosage: 150 ML, UNKNOWN
     Route: 065
  10. FUROSEMIDE [Concomitant]
     Dosage: 10 MG, UNKNOWN
     Route: 065
  11. PREDNISOLONE [Concomitant]
     Dosage: 50 MG, UNKNOWN
     Route: 065
  12. ONDANSETRON [Concomitant]
     Dosage: 8 MG, UNKNOWN
     Route: 042
  13. ALIMTA [Suspect]
     Dosage: 500 MG/M2, EVERY 21 DAYS
     Route: 065
     Dates: start: 20110613
  14. FUROSEMIDE [Concomitant]
     Dosage: 20 MG, UNKNOWN
     Route: 065
  15. ONDANSETRON [Concomitant]
     Dosage: 8 MG, UNKNOWN
     Route: 048

REACTIONS (4)
  - ANGLE CLOSURE GLAUCOMA [None]
  - MALAISE [None]
  - HEADACHE [None]
  - CORNEAL OEDEMA [None]
